FAERS Safety Report 6887088-3 (Version None)
Quarter: 2010Q3

REPORT INFORMATION
  Report Type: 
  Country: None (occurrence: None)
  Receive Date: 20100730
  Receipt Date: 20100722
  Transmission Date: 20110219
  Serious: Yes (Other)
  Sender: FDA-Public Use
  Company Number: JP-JNJFOC-20100707125

PATIENT

DRUGS (2)
  1. NIZORAL [Suspect]
     Indication: PRODUCT USED FOR UNKNOWN INDICATION
     Route: 061
  2. ALL OTHER THERAPEUTIC PRODUCT [Concomitant]
     Route: 065

REACTIONS (1)
  - ANAPHYLACTOID REACTION [None]
